FAERS Safety Report 9953337 (Version 2)
Quarter: 2014Q1

REPORT INFORMATION
  Report Type: Report from Study
  Country: US (occurrence: US)
  Receive Date: 20140304
  Receipt Date: 20140304
  Transmission Date: 20141002
  Serious: No
  Sender: FDA-Public Use
  Company Number: US-ABBVIE-13P-163-1072665-00

PATIENT
  Age: 14 Year
  Sex: Female
  Weight: 47.67 kg

DRUGS (9)
  1. HUMIRA [Suspect]
     Indication: CROHN^S DISEASE
     Dates: start: 201108, end: 201108
  2. HUMIRA [Suspect]
     Dates: start: 201109, end: 201109
  3. HUMIRA [Suspect]
     Dates: start: 201109, end: 201212
  4. HUMIRA [Suspect]
     Dates: start: 201212, end: 201301
  5. HUMIRA [Suspect]
     Dates: start: 201301, end: 20130401
  6. HUMIRA [Suspect]
     Indication: CROHN^S DISEASE
     Route: 058
  7. PENTASA [Concomitant]
     Indication: CROHN^S DISEASE
  8. VITAMIN D [Concomitant]
     Indication: PRODUCT USED FOR UNKNOWN INDICATION
  9. IRON [Concomitant]
     Indication: PRODUCT USED FOR UNKNOWN INDICATION
     Dosage: DAILY

REACTIONS (4)
  - Genital rash [Not Recovered/Not Resolved]
  - Diarrhoea [Not Recovered/Not Resolved]
  - Abdominal pain upper [Not Recovered/Not Resolved]
  - Crohn^s disease [Recovered/Resolved]
